FAERS Safety Report 8370117-8 (Version None)
Quarter: 2012Q2

REPORT INFORMATION
  Report Type: 
  Country: None (occurrence: None)
  Receive Date: 20120518
  Receipt Date: 20120511
  Transmission Date: 20120825
  Serious: Yes (Hospitalization)
  Sender: FDA-Public Use
  Company Number: IT-B.I. PHARMACEUTICALS,INC./RIDGEFIELD-2012-IT-00135IT

PATIENT
  Sex: Female

DRUGS (4)
  1. VIRAMUNE [Suspect]
     Indication: ANTIRETROVIRAL THERAPY
     Dosage: 400 MG
     Route: 048
     Dates: start: 20120407, end: 20120414
  2. TRUVADA [Concomitant]
     Dosage: STRENGTH: 200MG/245MG
     Route: 048
  3. ACETYLCYSTEINE [Concomitant]
     Route: 048
  4. AUGMENTIN [Concomitant]
     Dosage: STRENGTH: 875MG/125MG
     Route: 048
     Dates: start: 20120413, end: 20120414

REACTIONS (4)
  - HYPERTRANSAMINASAEMIA [None]
  - LEUKOPENIA [None]
  - PYREXIA [None]
  - RASH [None]
